FAERS Safety Report 16753920 (Version 1)
Quarter: 2019Q3

REPORT INFORMATION
  Report Type: Spontaneous
  Country: GB (occurrence: GB)
  Receive Date: 20190829
  Receipt Date: 20190829
  Transmission Date: 20191005
  Serious: Yes (Other)
  Sender: FDA-Public Use
  Company Number: GB-TEVA-2019-GB-1098011

PATIENT
  Age: 50 Year
  Sex: Male
  Weight: 68 kg

DRUGS (13)
  1. HYDROCORTISONE. [Concomitant]
     Active Substance: HYDROCORTISONE
     Dosage: APPLY TWICE DAILY. PLEASE SEEK MEDICAL REVIEW 2 DOSAGE FORMS
     Dates: start: 20100928
  2. DOXYCYCLINE. [Concomitant]
     Active Substance: DOXYCYCLINE
     Dosage: PRIOR TO CATHET...
     Dates: start: 20170811
  3. TRIMETHOPRIM. [Concomitant]
     Active Substance: TRIMETHOPRIM
     Dosage: 2 DOSAGE FORMS
     Dates: start: 20190527, end: 20190603
  4. PROMETHAZINE HYDROCHLORIDE. [Concomitant]
     Active Substance: PROMETHAZINE HYDROCHLORIDE
     Dosage: TAKE 1-2 TABLETS AT NIGHT
     Dates: start: 20170330
  5. RAMIPRIL. [Concomitant]
     Active Substance: RAMIPRIL
     Dosage: 1 DOSAGE FORMS
     Dates: start: 20090414
  6. OTOMIZE [Concomitant]
     Active Substance: DEXAMETHASONE\NEOMYCIN SULFATE
     Dosage: USE AS DIRECTED
     Dates: start: 20170208
  7. XYLOMETAZOLINE HYDROCHLORIDE [Concomitant]
     Active Substance: XYLOMETAZOLINE HYDROCHLORIDE
     Indication: SEASONAL ALLERGY
     Dosage: 3 GTT
     Dates: start: 20080617
  8. LACTULOSE. [Suspect]
     Active Substance: LACTULOSE
     Dosage: 3.1-3.7G//5ML 30 ML
     Dates: start: 20180927, end: 20190610
  9. FEXOFENADINE [Concomitant]
     Active Substance: FEXOFENADINE HYDROCHLORIDE
     Dosage: 1 DOSAGE FORMS
     Dates: start: 20170330
  10. BETAMETHASONE VALERATE. [Concomitant]
     Active Substance: BETAMETHASONE VALERATE
     Dosage: AS DIRECTED
     Dates: start: 20030811
  11. CANESTEN [Concomitant]
     Active Substance: CLOTRIMAZOLE
     Dosage: APPLY TWICE DAILY SPARINGLY 2 DOSAGE FORMS
     Dates: start: 20060124
  12. AZITHROMYCIN ANHYDROUS. [Concomitant]
     Active Substance: AZITHROMYCIN ANHYDROUS
     Dosage: INSTIL ONE DROP INTO BOTH EYES TWICE DAILY FOR 3 DAYS 2 GTT
     Route: 050
     Dates: start: 20190704
  13. BALNEUM [Concomitant]
     Dosage: USE AS DIRECTED
     Dates: start: 20170330

REACTIONS (1)
  - Hyperglycaemia [Unknown]

NARRATIVE: CASE EVENT DATE: 20180927
